FAERS Safety Report 5321552-3 (Version None)
Quarter: 2007Q1

REPORT INFORMATION
  Report Type: 
  Country: None (occurrence: None)
  Receive Date: 20070215
  Receipt Date: 20061023
  Transmission Date: 20070707
  Serious: No
  Sender: FDA-Public Use
  Company Number: 200616278BWH

PATIENT
  Age: 70 Year
  Sex: Female

DRUGS (7)
  1. NEXAVAR [Suspect]
     Indication: RENAL CELL CARCINOMA STAGE UNSPECIFIED
     Dosage: 400 MG BID ORAL
     Route: 048
     Dates: start: 20061005, end: 20061016
  2. MAXZIDE [Concomitant]
  3. ASPIRIN [Concomitant]
  4. NORVASC [Concomitant]
  5. VISTARIL [Concomitant]
  6. DIGESTIVE ENZYMES [Concomitant]
  7. ULTRAM [Concomitant]

REACTIONS (5)
  - BLISTER [None]
  - ERYTHEMA [None]
  - HYPERKERATOSIS [None]
  - PALMAR-PLANTAR ERYTHRODYSAESTHESIA SYNDROME [None]
  - SKIN DISCOLOURATION [None]
